FAERS Safety Report 17733511 (Version 2)
Quarter: 2021Q3

REPORT INFORMATION
  Report Type: Spontaneous
  Country: CA (occurrence: CA)
  Receive Date: 20200501
  Receipt Date: 20210814
  Transmission Date: 20211014
  Serious: Yes (Other)
  Sender: FDA-Public Use
  Company Number: CA-ROCHE-2588849

PATIENT
  Age: 71 Year
  Sex: Female

DRUGS (4)
  1. APO?LEFLUNOMIDE [Suspect]
     Active Substance: LEFLUNOMIDE
     Indication: PRODUCT USED FOR UNKNOWN INDICATION
     Route: 065
  2. METHOTREXATE. [Suspect]
     Active Substance: METHOTREXATE
     Indication: RHEUMATOID ARTHRITIS
     Route: 065
  3. ACTEMRA [Suspect]
     Active Substance: TOCILIZUMAB
     Indication: PRODUCT USED FOR UNKNOWN INDICATION
     Route: 065
  4. SULFASALAZINE. [Suspect]
     Active Substance: SULFASALAZINE
     Indication: RHEUMATOID ARTHRITIS
     Route: 048

REACTIONS (11)
  - Drug ineffective [Unknown]
  - Urticaria [Unknown]
  - Bone erosion [Unknown]
  - Dyspepsia [Unknown]
  - Nausea [Unknown]
  - Abdominal distension [Unknown]
  - Hypersensitivity [Unknown]
  - Drug intolerance [Unknown]
  - Synovitis [Unknown]
  - Arthralgia [Unknown]
  - Joint swelling [Unknown]
